FAERS Safety Report 8461240-8 (Version None)
Quarter: 2012Q2

REPORT INFORMATION
  Report Type: 
  Country: None (occurrence: None)
  Receive Date: 20120323
  Receipt Date: 20111128
  Transmission Date: 20120825
  Serious: Yes (Other)
  Sender: FDA-Public Use
  Company Number: 163-21880-11102311

PATIENT
  Age: 88 Year
  Sex: Female

DRUGS (3)
  1. CALCIUM +D (OS-CAL) [Concomitant]
  2. REVLIMID [Suspect]
     Indication: MULTIPLE MYELOMA
     Dosage: 25 MG, 1 IN 1 D, PO; 15 MG, X21 DAYS EVERY 28 DAYS, PO
     Route: 048
     Dates: start: 20101101
  3. REVLIMID [Suspect]
     Indication: MULTIPLE MYELOMA
     Dosage: 25 MG, 1 IN 1 D, PO; 15 MG, X21 DAYS EVERY 28 DAYS, PO
     Route: 048
     Dates: start: 20110202

REACTIONS (5)
  - HIP FRACTURE [None]
  - ARTHROPATHY [None]
  - WHITE BLOOD CELL COUNT DECREASED [None]
  - IMMUNOGLOBULINS INCREASED [None]
  - TRAUMATIC FRACTURE [None]
